FAERS Safety Report 6355735-0 (Version None)
Quarter: 2009Q3

REPORT INFORMATION
  Report Type: 
  Country: None (occurrence: None)
  Receive Date: 20090910
  Receipt Date: 20090825
  Transmission Date: 20100115
  Serious: Yes (Death)
  Sender: FDA-Public Use
  Company Number: 2009AL000849

PATIENT
  Sex: Male

DRUGS (18)
  1. DIGOXIN [Suspect]
     Dosage: PO
     Route: 048
     Dates: start: 20030101
  2. FUROSEMIDE [Concomitant]
  3. TOPROL-XL [Concomitant]
  4. NEXIUM [Concomitant]
  5. SUCRALFATE [Concomitant]
  6. FLOVENT [Concomitant]
  7. SPIRIVA [Concomitant]
  8. LISINOPRIL [Concomitant]
  9. POTASSIUM CHLORIDE [Concomitant]
  10. CARTIA XT [Concomitant]
  11. XIBROM [Concomitant]
  12. DILTIAZEM [Concomitant]
  13. PREVPAC [Concomitant]
  14. WARFARIN SODIUM [Concomitant]
  15. METOPROLOL TARTRATE [Concomitant]
  16. NITROFURANTOIN [Concomitant]
  17. SPIRONOLACTONE [Concomitant]
  18. DIOVAN [Concomitant]

REACTIONS (4)
  - ECONOMIC PROBLEM [None]
  - EMOTIONAL DISORDER [None]
  - MULTIPLE INJURIES [None]
  - PAIN [None]
